FAERS Safety Report 16901912 (Version 9)
Quarter: 2021Q4

REPORT INFORMATION
  Report Type: Report from Study
  Country: JP (occurrence: JP)
  Receive Date: 20191010
  Receipt Date: 20211216
  Transmission Date: 20220303
  Serious: Yes (Hospitalization)
  Sender: FDA-Public Use
  Company Number: JP-ABBVIE-19K-087-2937519-00

PATIENT
  Age: 81 Year
  Sex: Female
  Weight: 42 kg

DRUGS (20)
  1. CARBIDOPA\LEVODOPA [Suspect]
     Active Substance: CARBIDOPA\LEVODOPA
     Indication: Parkinson^s disease
     Dosage: MD: 11 ML?CD: 3.2 ML/HR X 16 HRS?ED: 1.0 ML/UNIT X 2
     Route: 050
     Dates: start: 20190730, end: 20190822
  2. CARBIDOPA\LEVODOPA [Suspect]
     Active Substance: CARBIDOPA\LEVODOPA
     Dosage: MD: 11 ML?CD: 3.0 ML/HR X 16 HRS?ED: 1.0 ML/UNIT X 2
     Route: 050
     Dates: start: 20190823, end: 20190826
  3. CARBIDOPA\LEVODOPA [Suspect]
     Active Substance: CARBIDOPA\LEVODOPA
     Dosage: MD: 11 ML?CD: 3.2 ML/HR X 16 HRS?ED: 1.0 ML/UNIT X 2
     Route: 050
     Dates: start: 20190827, end: 20190918
  4. CARBIDOPA\LEVODOPA [Suspect]
     Active Substance: CARBIDOPA\LEVODOPA
     Dosage: MD: 11 ML?CD: 3.4 ML/HR X 16 HRS?ED: 1.0 ML/UNIT X 2
     Route: 050
     Dates: start: 20190919, end: 20191009
  5. CARBIDOPA\LEVODOPA [Suspect]
     Active Substance: CARBIDOPA\LEVODOPA
     Dosage: MD: 11 ML?CD: 3.5 ML/HR X 16 HRS?ED: 2.0 ML/UNIT X 2
     Route: 050
     Dates: start: 20191010, end: 20191012
  6. CARBIDOPA\LEVODOPA [Suspect]
     Active Substance: CARBIDOPA\LEVODOPA
     Dosage: MD: 11.0 ML?CD: 3.8 ML/HR X 16 HRS?ED: 2.0 ML/UNIT X 2
     Route: 050
     Dates: start: 20201013, end: 20210211
  7. CARBIDOPA\LEVODOPA [Suspect]
     Active Substance: CARBIDOPA\LEVODOPA
     Dosage: MD: 13.0 ML?CD: 3.8 ML/HR X 16 HRS?ED: 2.0 ML/UNIT X 1
     Route: 050
     Dates: start: 20210211, end: 20210214
  8. CARBIDOPA\LEVODOPA [Suspect]
     Active Substance: CARBIDOPA\LEVODOPA
     Dosage: MD: 13.0 ML?CD: 4.0 ML/HR X 16 HRS?ED: 2.0 ML/UNIT X 1
     Route: 050
     Dates: start: 20210215, end: 20210311
  9. CARBIDOPA\LEVODOPA [Suspect]
     Active Substance: CARBIDOPA\LEVODOPA
     Dosage: MD: 13.0 ML?CD: 4.3 ML/HR X 16 HRS?ED: 2.0 ML/UNIT X 1
     Route: 050
     Dates: start: 20210311, end: 20210408
  10. CARBIDOPA\LEVODOPA [Suspect]
     Active Substance: CARBIDOPA\LEVODOPA
     Dosage: MD: 13.0 ML?CD: 4.2 ML/HR X 08 HRS?ED: 2.0 ML/UNIT X 1
     Route: 050
     Dates: start: 20210408
  11. ROTIGOTINE [Concomitant]
     Active Substance: ROTIGOTINE
     Indication: Parkinson^s disease
     Route: 062
  12. ENTACAPONE [Concomitant]
     Active Substance: ENTACAPONE
     Indication: Parkinson^s disease
     Route: 048
     Dates: start: 20191011
  13. VONOPRAZAN FUMARATE [Concomitant]
     Active Substance: VONOPRAZAN FUMARATE
     Indication: Prophylaxis
     Route: 048
  14. SENNOSIDES [Concomitant]
     Active Substance: SENNOSIDES
     Indication: Product used for unknown indication
     Route: 048
  15. METHYLCOBALAMIN [Concomitant]
     Active Substance: METHYLCOBALAMIN
     Indication: Product used for unknown indication
     Route: 048
  16. LUBIPROSTONE [Concomitant]
     Active Substance: LUBIPROSTONE
     Indication: Product used for unknown indication
     Route: 048
  17. CLONAZEPAM [Concomitant]
     Active Substance: CLONAZEPAM
     Indication: Product used for unknown indication
     Route: 048
  18. EDOXABAN TOSYLATE [Concomitant]
     Active Substance: EDOXABAN TOSYLATE
     Indication: Product used for unknown indication
     Route: 048
     Dates: start: 20190816
  19. CARBOCYSTEINE [Concomitant]
     Active Substance: CARBOCYSTEINE
     Indication: Product used for unknown indication
     Route: 048
  20. DIPHENIDOL HYDROCHLORIDE [Concomitant]
     Active Substance: DIPHENIDOL HYDROCHLORIDE
     Indication: Product used for unknown indication
     Route: 048

REACTIONS (9)
  - Malaise [Recovered/Resolved]
  - Intussusception [Recovered/Resolved]
  - Hypoacusis [Unknown]
  - Mobility decreased [Unknown]
  - Tremor [Unknown]
  - Chromaturia [Unknown]
  - Therapeutic product effect decreased [Unknown]
  - Stoma site discharge [Not Recovered/Not Resolved]
  - Incorrect dose administered [Unknown]

NARRATIVE: CASE EVENT DATE: 20190101
